FAERS Safety Report 5622739-2 (Version None)
Quarter: 2008Q1

REPORT INFORMATION
  Report Type: 
  Country: None (occurrence: None)
  Receive Date: 20080212
  Receipt Date: 20080201
  Transmission Date: 20080703
  Serious: Yes (Other)
  Sender: FDA-Public Use
  Company Number: ES-JNJFOC-20080201124

PATIENT
  Age: 68 Year
  Sex: Female
  Weight: 150 kg

DRUGS (4)
  1. REMICADE [Suspect]
     Dosage: 18TH INFUSION
     Route: 042
  2. REMICADE [Suspect]
     Dosage: 17TH INFUSION
     Route: 042
  3. REMICADE [Suspect]
     Dosage: 16TH INFUSION
     Route: 042
  4. REMICADE [Suspect]
     Indication: RHEUMATOID ARTHRITIS
     Dosage: INITIAL INFUSION
     Route: 042

REACTIONS (1)
  - SQUAMOUS CELL CARCINOMA [None]
